FAERS Safety Report 9284554 (Version 1)
Quarter: 2013Q2

REPORT INFORMATION
  Report Type: Spontaneous
  Country: US (occurrence: US)
  Receive Date: 20130511
  Receipt Date: 20130511
  Transmission Date: 20140414
  Serious: No
  Sender: FDA-Public Use
  Company Number: US-009507513-1305USA002407

PATIENT
  Sex: 0

DRUGS (1)
  1. NEXPLANON [Suspect]

REACTIONS (1)
  - Unevaluable event [Unknown]
